FAERS Safety Report 12276679 (Version 1)
Quarter: 2016Q2

REPORT INFORMATION
  Report Type: Spontaneous
  Country: US (occurrence: None)
  Receive Date: 20160415
  Receipt Date: 20160415
  Transmission Date: 20160815
  Serious: Yes (Life-Threatening, Hospitalization, Disabling, Other)
  Sender: FDA-Public Use
  Company Number: None

PATIENT
  Age: 18 Year
  Sex: Female
  Weight: 63.5 kg

DRUGS (5)
  1. BEYAZ [Suspect]
     Active Substance: DROSPIRENONE\ETHINYL ESTRADIOL\LEVOMEFOLATE CALCIUM
     Indication: CONTRACEPTION
     Route: 048
  2. NUDEXTA [Concomitant]
  3. BEYAZ [Suspect]
     Active Substance: DROSPIRENONE\ETHINYL ESTRADIOL\LEVOMEFOLATE CALCIUM
     Indication: ACNE
     Route: 048
  4. CLONAZEPAM. [Concomitant]
     Active Substance: CLONAZEPAM
  5. ONE A DAY DAILY WOMEN^S MULTI VITAMIN [Concomitant]

REACTIONS (5)
  - Fall [None]
  - Mental disorder [None]
  - Educational problem [None]
  - Astrocytoma malignant [None]
  - Activities of daily living impaired [None]

NARRATIVE: CASE EVENT DATE: 20140924
